FAERS Safety Report 4565369-6 (Version None)
Quarter: 2005Q1

REPORT INFORMATION
  Report Type: 
  Country: None (occurrence: None)
  Receive Date: 20050125
  Receipt Date: 20050125
  Transmission Date: 20050727
  Serious: Yes (Hospitalization, Disabling, Other)
  Sender: FDA-Public Use
  Company Number: None

PATIENT
  Age: 26 Year
  Sex: Female
  Weight: 86.1834 kg

DRUGS (1)
  1. LUPRON DEPOT [Suspect]
     Indication: ENDOMETRIOSIS
     Dosage: 1 SHOT LAST 3 MONTHS
     Dates: start: 19980501, end: 19980801

REACTIONS (9)
  - ARTHRALGIA [None]
  - DEPRESSION [None]
  - DRUG INEFFECTIVE [None]
  - MEMORY IMPAIRMENT [None]
  - MIGRAINE [None]
  - MUSCLE SPASMS [None]
  - PAIN [None]
  - PITUITARY TUMOUR [None]
  - WEIGHT INCREASED [None]
